FAERS Safety Report 8602005-3 (Version None)
Quarter: 2012Q3

REPORT INFORMATION
  Report Type: 
  Country: None (occurrence: None)
  Receive Date: 20120817
  Receipt Date: 20120803
  Transmission Date: 20120928
  Serious: Yes (Other)
  Sender: FDA-Public Use
  Company Number: JP-PFIZER INC-2012168092

PATIENT
  Age: 74 Year
  Sex: Female
  Weight: 56.2 kg

DRUGS (7)
  1. LIPITOR [Suspect]
     Indication: HYPERLIPIDAEMIA
     Dosage: 5 MG, 1X/DAY
     Route: 048
  2. BOUFUUTSUUSHOUSAN [Concomitant]
     Dosage: UNK
     Dates: start: 20110222, end: 20120720
  3. LIPITOR [Suspect]
     Dosage: 10 MG, 1X/DAY
     Route: 048
     Dates: start: 20120425, end: 20120707
  4. AMLODIPINE [Concomitant]
     Indication: HYPERTENSION
     Dosage: 0.5 MG DAILY
     Route: 048
     Dates: start: 20101208
  5. KAKKON-TO [Concomitant]
     Dosage: UNK
     Dates: start: 20120221, end: 20120720
  6. KEISHIBUKURYOUGAN [Concomitant]
     Dosage: UNK
     Dates: start: 20100723, end: 20120720
  7. BOUIOUGITOU [Concomitant]
     Dosage: UNK
     Dates: start: 20100723, end: 20120720

REACTIONS (2)
  - HYPERKALAEMIA [None]
  - BLOOD ALDOSTERONE DECREASED [None]
